FAERS Safety Report 6593293-6 (Version None)
Quarter: 2010Q1

REPORT INFORMATION
  Report Type: 
  Country: None (occurrence: None)
  Receive Date: 20100222
  Receipt Date: 20090217
  Transmission Date: 20100710
  Serious: No
  Sender: FDA-Public Use
  Company Number: US-BRISTOL-MYERS SQUIBB COMPANY-14436588

PATIENT
  Sex: Female

DRUGS (3)
  1. ORENCIA [Suspect]
  2. METHOTREXATE [Suspect]
     Route: 048
  3. CELEBREX [Concomitant]
     Dosage: 1 TO 2 TABS EVERY OTHER DAY DEPENDING ON SYMPTOMS.

REACTIONS (1)
  - JOINT SWELLING [None]
